FAERS Safety Report 15148386 (Version 3)
Quarter: 2018Q3

REPORT INFORMATION
  Report Type: Spontaneous
  Country: US (occurrence: US)
  Receive Date: 20180716
  Receipt Date: 20180808
  Transmission Date: 20181010
  Serious: No
  Sender: FDA-Public Use
  Company Number: US-009507513-1807USA003128

PATIENT
  Age: 68 Year
  Sex: Female

DRUGS (7)
  1. AMLODIPINE [Concomitant]
     Active Substance: AMLODIPINE BESYLATE
  2. ATENOLOL. [Concomitant]
     Active Substance: ATENOLOL
  3. OCTREOTIDE. [Concomitant]
     Active Substance: OCTREOTIDE
  4. TOPAMAX [Concomitant]
     Active Substance: TOPIRAMATE
  5. INTRON A [Suspect]
     Active Substance: INTERFERON ALFA-2B
     Dosage: 2.5 MILLION IU, TIW
     Route: 058
     Dates: start: 20180127, end: 20180705
  6. XGEVA [Concomitant]
     Active Substance: DENOSUMAB
  7. SANDOSTATIN [Concomitant]
     Active Substance: OCTREOTIDE ACETATE

REACTIONS (1)
  - Drug ineffective [Unknown]

NARRATIVE: CASE EVENT DATE: 201807
